FAERS Safety Report 13497542 (Version 1)
Quarter: 2017Q2

REPORT INFORMATION
  Report Type: Spontaneous
  Country: US (occurrence: US)
  Receive Date: 20170428
  Receipt Date: 20170428
  Transmission Date: 20170830
  Serious: Yes (Other)
  Sender: FDA-Public Use
  Company Number: US-ELI_LILLY_AND_COMPANY-US201704010702

PATIENT
  Sex: Female

DRUGS (2)
  1. ZYPREXA ZYDIS [Suspect]
     Active Substance: OLANZAPINE
     Indication: BIPOLAR DISORDER
     Dosage: 10 MG, QD
     Route: 065
     Dates: start: 2012, end: 201701
  2. SYNTHROID [Concomitant]
     Active Substance: LEVOTHYROXINE SODIUM
     Dosage: UNK, UNKNOWN
     Route: 065

REACTIONS (7)
  - Muscle rupture [Unknown]
  - Fall [Unknown]
  - Back disorder [Unknown]
  - Weight decreased [Unknown]
  - Rash generalised [Unknown]
  - Eating disorder [Unknown]
  - Parkinsonism [Unknown]

NARRATIVE: CASE EVENT DATE: 201611
